FAERS Safety Report 4701741-9 (Version None)
Quarter: 2005Q2

REPORT INFORMATION
  Report Type: 
  Country: None (occurrence: None)
  Receive Date: 20050627
  Receipt Date: 20050620
  Transmission Date: 20051028
  Serious: Yes (Life-Threatening)
  Sender: FDA-Public Use
  Company Number: ST-2005-008436

PATIENT
  Age: 82 Year
  Sex: Female

DRUGS (5)
  1. OLMETEC [Suspect]
     Indication: HYPERTENSION
     Dosage: 20 MG QD PO
     Route: 048
     Dates: start: 20050326, end: 20050615
  2. MEVALOTIN [Concomitant]
  3. CARDENALIN [Concomitant]
  4. SELECTOL [Concomitant]
  5. HYPOCA [Concomitant]

REACTIONS (3)
  - BRADYCARDIA [None]
  - HYPERKALAEMIA [None]
  - LOSS OF CONSCIOUSNESS [None]
